FAERS Safety Report 20727690 (Version 1)
Quarter: 2022Q2

REPORT INFORMATION
  Report Type: Other
  Country: US (occurrence: None)
  Receive Date: 20220419
  Receipt Date: 20220419
  Transmission Date: 20220721
  Serious: Yes (Other)
  Sender: FDA-Public Use
  Company Number: US-ROCHE-2958827

PATIENT
  Age: 16 Year
  Sex: Female

DRUGS (9)
  1. BEVACIZUMAB [Suspect]
     Active Substance: BEVACIZUMAB
     Indication: Metastases to meninges
     Route: 065
  2. ETOPOSIDE [Concomitant]
     Active Substance: ETOPOSIDE
  3. VINCRISTINE [Concomitant]
     Active Substance: VINCRISTINE
     Dosage: 1.5 G/M2
  4. DOXORUBICIN [Concomitant]
     Active Substance: DOXORUBICIN
  5. CYCLOPHOSPHAMIDE [Concomitant]
     Active Substance: CYCLOPHOSPHAMIDE
  6. IFOSFAMIDE [Concomitant]
     Active Substance: IFOSFAMIDE
  7. TOPOTECAN [Concomitant]
     Active Substance: TOPOTECAN HYDROCHLORIDE
  8. TEMOZOLOMIDE [Concomitant]
     Active Substance: TEMOZOLOMIDE
  9. IRINOTECAN [Concomitant]
     Active Substance: IRINOTECAN

REACTIONS (1)
  - Tumour haemorrhage [Unknown]
